FAERS Safety Report 22888627 (Version 3)
Quarter: 2024Q2

REPORT INFORMATION
  Report Type: Report from Study
  Country: CA (occurrence: CA)
  Receive Date: 20230831
  Receipt Date: 20240405
  Transmission Date: 20240716
  Serious: Yes (Other)
  Sender: FDA-Public Use
  Company Number: CA-BAUSCH-BL-2023-013056

PATIENT
  Age: 72 Year
  Sex: Male

DRUGS (2)
  1. SILIQ [Suspect]
     Active Substance: BRODALUMAB
     Indication: Psoriasis
     Dosage: 210MG/1.5ML, WEEKLY (WEEK 0 - WEEK 2)
     Route: 058
     Dates: start: 20221214, end: 202212
  2. SILIQ [Suspect]
     Active Substance: BRODALUMAB
     Dosage: 210MG/1.5ML, Q2 WEEKS
     Route: 058
     Dates: start: 2023

REACTIONS (3)
  - Retinal tear [Unknown]
  - Psoriasis [Unknown]
  - Tongue geographic [Recovered/Resolved]

NARRATIVE: CASE EVENT DATE: 20230101
